FAERS Safety Report 7128795-7 (Version None)
Quarter: 2010Q4

REPORT INFORMATION
  Report Type: 
  Country: None (occurrence: None)
  Receive Date: 20101130
  Receipt Date: 20101123
  Transmission Date: 20110411
  Serious: Yes (Hospitalization)
  Sender: FDA-Public Use
  Company Number: DE-BRISTOL-MYERS SQUIBB COMPANY-14236053

PATIENT
  Age: 45 Year
  Sex: Female
  Weight: 67 kg

DRUGS (10)
  1. PACLITAXEL [Suspect]
     Indication: BREAST CANCER
     Dosage: STARTED ON: 16-MAY-2008 FREQUENCY: DAY 1, 8, 15
     Dates: start: 20080620, end: 20080620
  2. CYCLOPHOSPHAMIDE [Suspect]
     Indication: BREAST CANCER
     Dosage: STARTED ON: 18-MAR-2008
     Dates: start: 20080430, end: 20080430
  3. EPIRUBICIN [Suspect]
     Indication: BREAST CANCER
     Dosage: STARTED ON: 18-MAR-2008
     Dates: start: 20080430, end: 20080430
  4. CAPECITABINE [Suspect]
     Indication: BREAST CANCER
     Dosage: STARTED ON: 16-MAY-2008 FREQ: ONCE A DAY FOR TWO WEEKS EVERY THREE WEEKS.
     Dates: start: 20080620, end: 20080620
  5. NEORECORMON [Concomitant]
     Dates: start: 20080318
  6. ONDANSETRON [Concomitant]
     Dosage: FREQ: ONCE FOR ONE TO 4 DAYS EVERY WEEK
     Dates: start: 20080516
  7. DEXAMETHASONE [Concomitant]
     Dosage: 2MG 2-4 TIMES, ONCE PER 8 DAYS FROM 16-MAY-2008-20JUN2008 ONCE A DAY 2,3 AND 4 WEEK
     Dates: start: 20080516, end: 20080620
  8. CLEMASTINE FUMARATE [Concomitant]
     Dates: start: 20080516
  9. ZANTAC [Concomitant]
     Dates: start: 20080516
  10. NEULASTA [Concomitant]
     Dates: start: 20080313, end: 20080430

REACTIONS (3)
  - FATIGUE [None]
  - PNEUMONIA [None]
  - PYREXIA [None]
